FAERS Safety Report 4576890-9 (Version None)
Quarter: 2005Q1

REPORT INFORMATION
  Report Type: 
  Country: None (occurrence: None)
  Receive Date: 20050207
  Receipt Date: 20041116
  Transmission Date: 20050727
  Serious: Yes (Life-Threatening, Hospitalization, Other)
  Sender: FDA-Public Use
  Company Number: 2004095781

PATIENT
  Age: 67 Year
  Sex: Female
  Weight: 52.1637 kg

DRUGS (6)
  1. CELECOXIB (CELECOXIB [Suspect]
     Indication: ARTHRITIS
     Dosage: (2 IN 1 D), ORAL
     Route: 048
  2. BEXTRA [Suspect]
     Indication: ARTHRITIS
     Dosage: 10 MG 910 MG, 1 IN 1 D), ORAL
     Route: 048
     Dates: start: 20040101, end: 20041001
  3. CONJUGATED ESTROGENS [Suspect]
     Indication: HYSTERECTOMY
  4. SIMVASTATIN [Suspect]
     Indication: ILL-DEFINED DISORDER
     Dosage: 40 MG (40 MG), ORAL
     Route: 048
  5. DAILY VITAMINS (VITAMINS NOS) [Concomitant]
  6. TOCOPHEROL (TOCOPHEROL) [Concomitant]

REACTIONS (8)
  - ARTHRALGIA [None]
  - DIARRHOEA [None]
  - DRUG EFFECT DECREASED [None]
  - HAEMATOCHEZIA [None]
  - HYPOAESTHESIA [None]
  - MYALGIA [None]
  - RASH ERYTHEMATOUS [None]
  - RASH PRURITIC [None]
